FAERS Safety Report 4826432-5 (Version None)
Quarter: 2005Q4

REPORT INFORMATION
  Report Type: 
  Country: None (occurrence: None)
  Receive Date: 20051014
  Receipt Date: 20050817
  Transmission Date: 20060501
  Serious: No
  Sender: FDA-Public Use
  Company Number: 2005SP002383

PATIENT
  Age: 77 Year
  Sex: Female
  Weight: 83.9154 kg

DRUGS (4)
  1. LUNESTA [Suspect]
     Indication: INSOMNIA
     Dosage: 3 MG;HS;ORAL
     Route: 048
     Dates: start: 20050816, end: 20050817
  2. TYLENOL (CAPLET) [Concomitant]
  3. MAXZIDE [Concomitant]
  4. KLONOPIN [Concomitant]

REACTIONS (1)
  - DIZZINESS [None]
